FAERS Safety Report 5208089-7 (Version None)
Quarter: 2006Q4

REPORT INFORMATION
  Report Type: 
  Country: None (occurrence: None)
  Receive Date: 20061027
  Receipt Date: 20060825
  Transmission Date: 20070319
  Serious: No
  Sender: FDA-Public Use
  Company Number: 200617181US

PATIENT
  Sex: Female

DRUGS (1)
  1. KETEK [Suspect]
     Dosage: QD

REACTIONS (1)
  - INSOMNIA [None]
